FAERS Safety Report 5075030-X (Version None)
Quarter: 2006Q3

REPORT INFORMATION
  Report Type: 
  Country: None (occurrence: None)
  Receive Date: 20060804
  Receipt Date: 20060727
  Transmission Date: 20061208
  Serious: Yes (Other)
  Sender: FDA-Public Use
  Company Number: ENTC2006-0221

PATIENT
  Age: 85 Year
  Sex: Female

DRUGS (2)
  1. STALEVO 50 [Suspect]
     Indication: PARKINSON'S DISEASE
     Dosage: 200 MG 4 IN 1 D ORAL
     Route: 048
     Dates: start: 20050701
  2. ZOLOFT [Concomitant]

REACTIONS (4)
  - CONDITION AGGRAVATED [None]
  - INTRAOCULAR PRESSURE INCREASED [None]
  - PLATELET COUNT INCREASED [None]
  - TREMOR [None]
